FAERS Safety Report 25138967 (Version 1)
Quarter: 2025Q1

REPORT INFORMATION
  Report Type: Report from Study
  Country: US (occurrence: US)
  Receive Date: 20250331
  Receipt Date: 20250331
  Transmission Date: 20250409
  Serious: Yes (Hospitalization)
  Sender: EISAI
  Company Number: US-Eisai-EC-2025-186526

PATIENT
  Age: 68 Year
  Sex: Female

DRUGS (3)
  1. LENVIMA [Suspect]
     Active Substance: LENVATINIB
     Indication: Thyroid cancer
     Dates: start: 20240613, end: 2024
  2. LENVIMA [Suspect]
     Active Substance: LENVATINIB
     Dosage: THREE WEEKS ON AND ONE WEEK OFF
     Dates: start: 2024, end: 2024
  3. LENVIMA [Suspect]
     Active Substance: LENVATINIB
     Dosage: TWO WEEKS ON AND ONE WEEK OFF AND THEN TWO WEEKS ON AND TWO WEEKS OFF.
     Dates: start: 2024

REACTIONS (1)
  - Atrial fibrillation [Unknown]

NARRATIVE: CASE EVENT DATE: 20250301
